FAERS Safety Report 8497552-1 (Version None)
Quarter: 2012Q3

REPORT INFORMATION
  Report Type: 
  Country: None (occurrence: None)
  Receive Date: 20120709
  Receipt Date: 20120614
  Transmission Date: 20120928
  Serious: No
  Sender: FDA-Public Use
  Company Number: US-AMGEN-USASP2012037154

PATIENT
  Sex: Male

DRUGS (3)
  1. ENBREL [Suspect]
     Indication: PSORIASIS
     Dosage: UNK
     Dates: start: 20080101, end: 20110101
  2. ENBREL [Suspect]
     Indication: PSORIATIC ARTHROPATHY
  3. ALLOPURINOL [Concomitant]
     Dosage: UNK

REACTIONS (4)
  - OEDEMA PERIPHERAL [None]
  - ARTHRITIS [None]
  - PSORIASIS [None]
  - GOUT [None]
